FAERS Safety Report 13864875 (Version 2)
Quarter: 2017Q3

REPORT INFORMATION
  Report Type: Spontaneous
  Country: SE (occurrence: SE)
  Receive Date: 20170814
  Receipt Date: 20170818
  Transmission Date: 20171127
  Serious: Yes (Other)
  Sender: FDA-Public Use
  Company Number: SE-BRACCO-2017SE03706

PATIENT
  Age: 58 Year
  Sex: Female

DRUGS (1)
  1. SONOVUE [Suspect]
     Active Substance: SULFUR HEXAFLUORIDE
     Indication: DIAGNOSTIC PROCEDURE
     Dosage: ^3,0+1,5 ML^
     Route: 042
     Dates: start: 20170801, end: 20170801

REACTIONS (4)
  - Dizziness [Recovered/Resolved]
  - Fatigue [Recovered/Resolved]
  - Contrast media reaction [None]
  - Asthenia [Recovered/Resolved]

NARRATIVE: CASE EVENT DATE: 20170801
